FAERS Safety Report 7674232-3 (Version None)
Quarter: 2011Q3

REPORT INFORMATION
  Report Type: 
  Country: None (occurrence: None)
  Receive Date: 20110810
  Receipt Date: 20110801
  Transmission Date: 20111222
  Serious: Yes (Hospitalization, Other)
  Sender: FDA-Public Use
  Company Number: US-ELI_LILLY_AND_COMPANY-US201108000168

PATIENT
  Sex: Female

DRUGS (15)
  1. LIDODERM [Concomitant]
     Dosage: UNK, QD
  2. TRAZODONE HCL [Concomitant]
     Dosage: 200 MG, EACH EVENING
  3. CYMBALTA [Concomitant]
     Dosage: 120 MG, QD
  4. NIACIN [Concomitant]
     Dosage: 500 MG, EACH EVENING
  5. FLEXERIL [Concomitant]
     Dosage: 30 MG, PRN
  6. LOTREL [Concomitant]
     Dosage: UNK, BID
  7. PRILOSEC [Concomitant]
     Dosage: 20 MG, QD
  8. FLUTICASONE PROPIONATE [Concomitant]
     Dosage: UNK, QD
  9. ASPIRIN [Concomitant]
     Dosage: 81 MG, QD
  10. FUROSEMIDE [Concomitant]
     Dosage: UNK, QD
  11. PRAVASTATIN [Concomitant]
     Dosage: 20 MG, EACH EVENING
  12. NEURONTIN [Concomitant]
     Dosage: 300 UNK, UNK
  13. GLUCOTROL [Concomitant]
  14. METFORMIN HCL [Concomitant]
  15. BYETTA [Suspect]

REACTIONS (1)
  - PANCREATITIS [None]
